FAERS Safety Report 5955415-7 (Version None)
Quarter: 2008Q4

REPORT INFORMATION
  Report Type: 
  Country: None (occurrence: None)
  Receive Date: 20081117
  Receipt Date: 20081111
  Transmission Date: 20090506
  Serious: Yes (Other)
  Sender: FDA-Public Use
  Company Number: CH-ABBOTT-08P-151-0487062-00

PATIENT
  Sex: Male

DRUGS (1)
  1. KLACID ONE [Suspect]
     Indication: BRONCHITIS

REACTIONS (1)
  - HEARING IMPAIRED [None]
